FAERS Safety Report 8508413-3 (Version None)
Quarter: 2012Q3

REPORT INFORMATION
  Report Type: 
  Country: None (occurrence: None)
  Receive Date: 20120713
  Receipt Date: 20120710
  Transmission Date: 20120928
  Serious: Yes (Hospitalization)
  Sender: FDA-Public Use
  Company Number: PHHY2012DE051925

PATIENT
  Sex: Male

DRUGS (1)
  1. GILENYA [Suspect]
     Indication: MULTIPLE SCLEROSIS
     Dosage: 0.5 MG, DAILY
     Route: 048
     Dates: start: 20120301

REACTIONS (6)
  - GASTRIC HAEMORRHAGE [None]
  - ABDOMINAL DISCOMFORT [None]
  - DECREASED APPETITE [None]
  - NEURALGIA [None]
  - DIARRHOEA [None]
  - NAUSEA [None]
